FAERS Safety Report 6403080-7 (Version None)
Quarter: 2009Q4

REPORT INFORMATION
  Report Type: 
  Country: None (occurrence: None)
  Receive Date: 20091016
  Receipt Date: 20091006
  Transmission Date: 20100525
  Serious: Yes (Other)
  Sender: FDA-Public Use
  Company Number: US-JNJFOC-20091002401

PATIENT
  Age: 40 Year
  Sex: Male

DRUGS (6)
  1. PREZISTA [Suspect]
     Route: 048
  2. PREZISTA [Suspect]
     Indication: HIV INFECTION
     Route: 048
  3. TRUVADA [Concomitant]
     Route: 065
  4. TRUVADA [Concomitant]
     Indication: HIV INFECTION
     Route: 065
  5. RITONAVIR [Concomitant]
     Route: 048
  6. RITONAVIR [Concomitant]
     Indication: HIV INFECTION
     Route: 048

REACTIONS (1)
  - GRANULOMATOUS LIVER DISEASE [None]
